FAERS Safety Report 15018542 (Version 1)
Quarter: 2018Q2

REPORT INFORMATION
  Report Type: Spontaneous
  Country: US (occurrence: US)
  Receive Date: 20180615
  Receipt Date: 20180615
  Transmission Date: 20180711
  Serious: No
  Sender: FDA-Public Use
  Company Number: US-009507513-1806USA005559

PATIENT
  Sex: Female

DRUGS (1)
  1. NEXPLANON [Suspect]
     Active Substance: ETONOGESTREL
     Dosage: 1 ROD/THREE YEARS, ARM
     Route: 059
     Dates: end: 20180611

REACTIONS (5)
  - Device expulsion [Recovered/Resolved]
  - Implant site erythema [Unknown]
  - Implant site warmth [Unknown]
  - Intentional medical device removal by patient [Unknown]
  - Implant site swelling [Unknown]

NARRATIVE: CASE EVENT DATE: 20180611
